FAERS Safety Report 6472464-3 (Version None)
Quarter: 2009Q4

REPORT INFORMATION
  Report Type: 
  Country: None (occurrence: None)
  Receive Date: 20091201
  Receipt Date: 20091119
  Transmission Date: 20100525
  Serious: Yes (Death)
  Sender: FDA-Public Use
  Company Number: A-NJ2009-27487

PATIENT
  Age: 73 Year
  Sex: Female

DRUGS (3)
  1. VENTAVIS      (ILLOPROST) INHALATION VAPOUR, SOLUTION [Suspect]
     Indication: PULMONARY ARTERIAL HYPERTENSION
     Dosage: RESPIRATORY
     Route: 055
     Dates: start: 20060522, end: 20090915
  2. TRACLEER [Suspect]
     Indication: PULMONARY ARTERIAL HYPERTENSION
     Dosage: ORAL
     Route: 048
     Dates: start: 20040401, end: 20090915
  3. REVATIO [Concomitant]

REACTIONS (1)
  - DYSPNOEA [None]
